FAERS Safety Report 13125481 (Version 2)
Quarter: 2017Q2

REPORT INFORMATION
  Report Type: Spontaneous
  Country: US (occurrence: US)
  Receive Date: 20170118
  Receipt Date: 20170412
  Transmission Date: 20170830
  Serious: No
  Sender: FDA-Public Use
  Company Number: US-009507513-1612USA009858

PATIENT
  Sex: Female

DRUGS (1)
  1. NEXPLANON [Suspect]
     Active Substance: ETONOGESTREL
     Dosage: 1 ROD (1 DF) FOR THREE YEARS
     Route: 059
     Dates: start: 20150418

REACTIONS (5)
  - Mood swings [Unknown]
  - Malaise [Unknown]
  - Polymenorrhoea [Unknown]
  - Vulvovaginal burning sensation [Unknown]
  - Depressed mood [Unknown]
